FAERS Safety Report 14019476 (Version 1)
Quarter: 2017Q3

REPORT INFORMATION
  Report Type: Spontaneous
  Country: CH (occurrence: CH)
  Receive Date: 20170928
  Receipt Date: 20170928
  Transmission Date: 20171128
  Serious: Yes (Other)
  Sender: FDA-Public Use
  Company Number: PHHY2017CH140477

PATIENT
  Age: 54 Year
  Sex: Female

DRUGS (1)
  1. AMOXICILLIN, CLAVULANATE [Suspect]
     Active Substance: AMOXICILLIN\CLAVULANATE POTASSIUM
     Indication: ERYSIPELAS
     Route: 065

REACTIONS (5)
  - Symmetrical drug-related intertriginous and flexural exanthema [Unknown]
  - Rash maculo-papular [Unknown]
  - Type I hypersensitivity [Unknown]
  - Skin exfoliation [Unknown]
  - Pruritus generalised [Unknown]
